FAERS Safety Report 22260930 (Version 1)
Quarter: 2023Q2

REPORT INFORMATION
  Report Type: Spontaneous
  Country: US (occurrence: US)
  Receive Date: 20230427
  Receipt Date: 20230427
  Transmission Date: 20230721
  Serious: No
  Sender: FDA-Public Use
  Company Number: US-BIOXCEL THERAPEUTICS, INC.-2023BIX00019

PATIENT
  Sex: Male

DRUGS (1)
  1. IGALMI [Suspect]
     Active Substance: DEXMEDETOMIDINE

REACTIONS (1)
  - Drug ineffective [Unknown]
